FAERS Safety Report 9007318 (Version 1)
Quarter: 2013Q1

REPORT INFORMATION
  Report Type: Spontaneous
  Country: US (occurrence: US)
  Receive Date: 20130110
  Receipt Date: 20130110
  Transmission Date: 20140127
  Serious: No
  Sender: FDA-Public Use
  Company Number: US-BAYER-2013-002625

PATIENT
  Sex: Female

DRUGS (2)
  1. MIRENA [Suspect]
     Dosage: 20 MCG/24HR, CONT
     Route: 015
     Dates: start: 201210
  2. TOPIRAMATE [Suspect]
     Indication: MIGRAINE
     Dosage: UNK
     Dates: start: 201212

REACTIONS (2)
  - Menstruation delayed [None]
  - Drug interaction [None]
